FAERS Safety Report 10241904 (Version 1)
Quarter: 2014Q2

REPORT INFORMATION
  Report Type: Spontaneous
  Country: JP (occurrence: JP)
  Receive Date: 20140617
  Receipt Date: 20140617
  Transmission Date: 20141212
  Serious: Yes (Disabling)
  Sender: FDA-Public Use
  Company Number: JP-GLAXOSMITHKLINE-B0996511A

PATIENT
  Age: 83 Year
  Sex: Male

DRUGS (13)
  1. VALTREX [Suspect]
     Indication: CORNEAL INFECTION
     Dosage: 1000MG THREE TIMES PER DAY
     Route: 048
     Dates: start: 20140509, end: 20140517
  2. FLUMARIN [Suspect]
     Indication: CORNEAL INFECTION
     Dosage: 1G TWICE PER DAY
     Route: 042
     Dates: start: 20140505, end: 20140511
  3. CLARITH [Suspect]
     Indication: CORNEAL INFECTION
     Dosage: 200MG TWICE PER DAY
     Route: 042
     Dates: start: 20140512, end: 20140517
  4. SPIRIVA [Concomitant]
     Indication: EMPHYSEMA
     Dosage: 18MCG PER DAY
     Route: 055
  5. AMARYL [Concomitant]
     Route: 048
  6. LINAGLIPTIN [Concomitant]
     Route: 048
  7. SEIBULE [Concomitant]
     Route: 048
  8. MUCOSTA [Concomitant]
     Indication: DECREASED APPETITE
     Dosage: 200MG THREE TIMES PER DAY
     Route: 048
     Dates: start: 20140516, end: 20140517
  9. BIOFERMIN R [Concomitant]
     Indication: DECREASED APPETITE
     Dosage: 1G THREE TIMES PER DAY
     Route: 048
     Dates: start: 20140516, end: 20140517
  10. TARIVID [Concomitant]
     Indication: CORNEAL INFECTION
     Route: 031
     Dates: start: 20140506
  11. VEGAMOX [Concomitant]
     Indication: CORNEAL INFECTION
     Route: 031
     Dates: start: 20140506
  12. BESTRON [Concomitant]
     Indication: CORNEAL INFECTION
     Route: 031
     Dates: start: 20140506
  13. TOBRACIN [Concomitant]
     Indication: CORNEAL INFECTION
     Route: 031
     Dates: start: 20140506

REACTIONS (3)
  - Renal failure acute [Recovered/Resolved]
  - Renal disorder [Recovered/Resolved]
  - Decreased appetite [Unknown]
